FAERS Safety Report 7088852-0 (Version None)
Quarter: 2010Q4

REPORT INFORMATION
  Report Type: 
  Country: None (occurrence: None)
  Receive Date: 20101108
  Receipt Date: 20101101
  Transmission Date: 20110411
  Serious: Yes (Other)
  Sender: FDA-Public Use
  Company Number: JP-PFIZER INC-2010124983

PATIENT
  Age: 51 Year
  Sex: Female
  Weight: 47 kg

DRUGS (1)
  1. ZITHROMAX [Suspect]
     Indication: PERICORONITIS
     Dosage: 250 MG/DAY
     Route: 048
     Dates: start: 20100927

REACTIONS (5)
  - COLD SWEAT [None]
  - HYPERVENTILATION [None]
  - HYPOAESTHESIA [None]
  - NAUSEA [None]
  - PERIPHERAL COLDNESS [None]
